FAERS Safety Report 17526295 (Version 4)
Quarter: 2025Q2

REPORT INFORMATION
  Report Type: Spontaneous
  Country: CZ (occurrence: CZ)
  Receive Date: 20200311
  Receipt Date: 20250609
  Transmission Date: 20250717
  Serious: Yes (Hospitalization, Other)
  Sender: MYLAN
  Company Number: CZ-CELLTRION HEALTHCARE HUNGARY KFT-2020CZ017692

PATIENT
  Age: 56 Year
  Sex: Male

DRUGS (22)
  1. METHOTREXATE [Suspect]
     Active Substance: METHOTREXATE
     Indication: Mantle cell lymphoma stage IV
  2. METHOTREXATE [Suspect]
     Active Substance: METHOTREXATE
     Indication: Mantle cell lymphoma
  3. METHOTREXATE [Suspect]
     Active Substance: METHOTREXATE
  4. RITUXIMAB [Suspect]
     Active Substance: RITUXIMAB
     Indication: Mantle cell lymphoma
  5. RITUXIMAB [Suspect]
     Active Substance: RITUXIMAB
  6. RITUXIMAB [Suspect]
     Active Substance: RITUXIMAB
  7. RITUXIMAB [Suspect]
     Active Substance: RITUXIMAB
  8. RITUXIMAB [Suspect]
     Active Substance: RITUXIMAB
  9. RITUXIMAB [Suspect]
     Active Substance: RITUXIMAB
  10. CYTARABINE [Suspect]
     Active Substance: CYTARABINE
     Indication: Mantle cell lymphoma
  11. CYTARABINE [Suspect]
     Active Substance: CYTARABINE
  12. CYTARABINE [Suspect]
     Active Substance: CYTARABINE
  13. BENDAMUSTINE [Suspect]
     Active Substance: BENDAMUSTINE
     Indication: Mantle cell lymphoma
  14. BENDAMUSTINE [Suspect]
     Active Substance: BENDAMUSTINE
  15. BENDAMUSTINE [Suspect]
     Active Substance: BENDAMUSTINE
  16. ICE [Suspect]
     Active Substance: MENTHOL
     Indication: Mantle cell lymphoma
  17. ICE [Suspect]
     Active Substance: MENTHOL
  18. CARBOPLATIN [Suspect]
     Active Substance: CARBOPLATIN
     Indication: Mantle cell lymphoma
  19. IFOSFAMIDE [Suspect]
     Active Substance: IFOSFAMIDE
     Indication: Mantle cell lymphoma
  20. ETOPOSIDE [Suspect]
     Active Substance: ETOPOSIDE
     Indication: Mantle cell lymphoma
  21. MELPHALAN [Concomitant]
     Active Substance: MELPHALAN
     Indication: Product used for unknown indication
  22. CARMUSTINE [Concomitant]
     Active Substance: CARMUSTINE
     Indication: Product used for unknown indication

REACTIONS (5)
  - Disease progression [Recovered/Resolved]
  - Lymphoma [Recovered/Resolved]
  - Renal failure [Unknown]
  - Drug ineffective [Unknown]
  - Product use in unapproved indication [Unknown]
